FAERS Safety Report 10051159 (Version 2)
Quarter: 2014Q2

REPORT INFORMATION
  Report Type: Spontaneous
  Country: CL (occurrence: CL)
  Receive Date: 20140401
  Receipt Date: 20140415
  Transmission Date: 20141212
  Serious: Yes (Hospitalization, Other)
  Sender: FDA-Public Use
  Company Number: CL-PFIZER INC-2014090070

PATIENT
  Sex: Female

DRUGS (1)
  1. DEPO-MEDROL [Suspect]
     Dosage: UNK
     Dates: start: 201403, end: 201403

REACTIONS (4)
  - Anaphylactic reaction [Unknown]
  - Respiratory disorder [Unknown]
  - Erythema [Unknown]
  - Abdominal pain [Unknown]
